FAERS Safety Report 7005070-2 (Version None)
Quarter: 2010Q3

REPORT INFORMATION
  Report Type: 
  Country: None (occurrence: None)
  Receive Date: 20100917
  Receipt Date: 20100906
  Transmission Date: 20110219
  Serious: Yes (Other)
  Sender: FDA-Public Use
  Company Number: 2010AP000152

PATIENT
  Age: 48 Year
  Sex: Female

DRUGS (4)
  1. OXCARBAZEPINE [Suspect]
     Indication: CONVULSION
     Dosage: 300 MG;BID, PO
     Route: 048
     Dates: start: 20071120
  2. LAMOTRIGINE [Concomitant]
  3. DIVALPROEX SODIUM [Concomitant]
  4. LEVOTHYROXINE SODIUM (LEVOTHYROXINE SODUM) [Concomitant]

REACTIONS (4)
  - ANTICONVULSANT DRUG LEVEL BELOW THERAPEUTIC [None]
  - CONDITION AGGRAVATED [None]
  - CONVULSION [None]
  - DRUG INEFFECTIVE [None]
